FAERS Safety Report 7902844-8 (Version None)
Quarter: 2011Q4

REPORT INFORMATION
  Report Type: 
  Country: None (occurrence: None)
  Receive Date: 20111104
  Receipt Date: 20111101
  Transmission Date: 20120403
  Serious: Yes (Death, Other)
  Sender: FDA-Public Use
  Company Number: 2011SP051326

PATIENT
  Age: 72 Year
  Sex: Male
  Weight: 51 kg

DRUGS (5)
  1. TEMODAL [Suspect]
     Dosage: 200 MG/M2;IV
     Route: 042
     Dates: start: 20100915, end: 20110624
  2. TEMODAL [Suspect]
     Indication: GLIOBLASTOMA MULTIFORME
     Dosage: PO
     Route: 048
     Dates: start: 20080804, end: 20100822
  3. KYTRIL /01178102/ [Concomitant]
  4. DEPAKENE [Concomitant]
  5. VALPROATE SODIUM [Concomitant]

REACTIONS (2)
  - ASPIRATION [None]
  - C-REACTIVE PROTEIN INCREASED [None]
